FAERS Safety Report 6707729-0 (Version None)
Quarter: 2010Q2

REPORT INFORMATION
  Report Type: 
  Country: None (occurrence: None)
  Receive Date: 20100503
  Receipt Date: 20090922
  Transmission Date: 20101027
  Serious: No
  Sender: FDA-Public Use
  Company Number: US-ASTRAZENECA-2009SE14668

PATIENT
  Age: 788 Month
  Sex: Female
  Weight: 48.1 kg

DRUGS (1)
  1. NEXIUM [Suspect]
     Indication: GASTRIC PH DECREASED
     Route: 048
     Dates: start: 20070701, end: 20090801

REACTIONS (2)
  - HEPATIC ENZYME INCREASED [None]
  - WEIGHT DECREASED [None]
